FAERS Safety Report 8007461-X (Version None)
Quarter: 2011Q4

REPORT INFORMATION
  Report Type: 
  Country: None (occurrence: None)
  Receive Date: 20111227
  Receipt Date: 20111215
  Transmission Date: 20120403
  Serious: Yes (Hospitalization, Other)
  Sender: FDA-Public Use
  Company Number: TH-MILLENNIUM PHARMACEUTICALS, INC.-2011-06254

PATIENT

DRUGS (3)
  1. MELPHALAN HYDROCHLORIDE [Concomitant]
     Indication: MULTIPLE MYELOMA
     Dosage: UNK
     Dates: start: 20110614, end: 20111101
  2. VELCADE [Suspect]
     Indication: MULTIPLE MYELOMA
     Dosage: 2 MG, UNK
     Route: 065
     Dates: start: 20110614, end: 20111122
  3. PREDNISONE TAB [Concomitant]
     Indication: MULTIPLE MYELOMA
     Dosage: UNK
     Dates: start: 20110614, end: 20111101

REACTIONS (1)
  - COLITIS [None]
